FAERS Safety Report 5148129-7 (Version None)
Quarter: 2006Q4

REPORT INFORMATION
  Report Type: 
  Country: None (occurrence: None)
  Receive Date: 20061106
  Receipt Date: 20061009
  Transmission Date: 20070319
  Serious: Yes (Hospitalization)
  Sender: FDA-Public Use
  Company Number: PIR #0610048

PATIENT
  Age: 43 Year
  Sex: Female

DRUGS (2)
  1. METRONIDAZOLE [Suspect]
     Indication: GINGIVITIS
  2. AMOXICILLIN [Concomitant]

REACTIONS (2)
  - SKIN TEST POSITIVE [None]
  - STEVENS-JOHNSON SYNDROME [None]
